FAERS Safety Report 14900122 (Version 1)
Quarter: 2018Q2

REPORT INFORMATION
  Report Type: Spontaneous
  Country: FR (occurrence: FR)
  Receive Date: 20180516
  Receipt Date: 20180516
  Transmission Date: 20180711
  Serious: Yes (Hospitalization, Other)
  Sender: FDA-Public Use
  Company Number: FR-MERCK KGAA-2047885

PATIENT
  Age: 56 Year
  Sex: Female

DRUGS (1)
  1. NOVOTHYROX [Suspect]
     Active Substance: LEVOTHYROXINE SODIUM
     Indication: HYPOTHYROIDISM
     Dates: start: 201704

REACTIONS (39)
  - Blood pressure decreased [Recovering/Resolving]
  - Dysphonia [Recovering/Resolving]
  - Limb discomfort [Recovering/Resolving]
  - Loss of libido [Recovering/Resolving]
  - Diarrhoea [Recovering/Resolving]
  - Asthenia [Not Recovered/Not Resolved]
  - Headache [Recovering/Resolving]
  - Alopecia [Recovering/Resolving]
  - Eye disorder [Recovering/Resolving]
  - Anxiety [Recovering/Resolving]
  - Irritability [Recovering/Resolving]
  - Suicidal ideation [Recovering/Resolving]
  - Insomnia [Recovering/Resolving]
  - Social problem [Recovering/Resolving]
  - Job dissatisfaction [Recovering/Resolving]
  - Vomiting [Recovering/Resolving]
  - Dyskinesia [Recovering/Resolving]
  - Weight increased [Recovering/Resolving]
  - Disturbance in attention [Not Recovered/Not Resolved]
  - Dyspnoea [Recovering/Resolving]
  - Nervousness [Recovering/Resolving]
  - Affect lability [Recovering/Resolving]
  - Psychiatric symptom [Recovering/Resolving]
  - Amnesia [Recovering/Resolving]
  - Depressed mood [Recovering/Resolving]
  - Arthralgia [Not Recovered/Not Resolved]
  - Anger [Recovering/Resolving]
  - Decreased interest [Recovering/Resolving]
  - Gamma-glutamyltransferase increased [Recovering/Resolving]
  - Muscle spasms [Recovering/Resolving]
  - Balance disorder [Recovering/Resolving]
  - Fatigue [Recovering/Resolving]
  - Depression [Recovering/Resolving]
  - Speech disorder [Recovering/Resolving]
  - Myalgia [Not Recovered/Not Resolved]
  - Blood thyroid stimulating hormone increased [Recovering/Resolving]
  - Malaise [Recovering/Resolving]
  - Cold sweat [Recovering/Resolving]
  - Alanine aminotransferase increased [Recovering/Resolving]

NARRATIVE: CASE EVENT DATE: 2017
